FAERS Safety Report 10156040 (Version 1)
Quarter: 2014Q2

REPORT INFORMATION
  Report Type: Spontaneous
  Country: US (occurrence: US)
  Receive Date: 20140506
  Receipt Date: 20140506
  Transmission Date: 20141212
  Serious: No
  Sender: FDA-Public Use
  Company Number: US-009507513-2012SP008473

PATIENT
  Age: 76 Year
  Sex: Male

DRUGS (3)
  1. CLARITIN [Suspect]
     Indication: HYPERSENSITIVITY
     Dosage: 20 MG, ONCE
     Route: 048
     Dates: start: 20120203
  2. TOPROL XL TABLETS [Concomitant]
     Indication: HYPERTENSION
     Dosage: UNK UNK, UNKNOWN
  3. LIPITOR [Concomitant]
     Indication: BLOOD CHOLESTEROL INCREASED
     Dosage: UNK UNK, UNKNOWN

REACTIONS (1)
  - Overdose [Unknown]
